FAERS Safety Report 24254681 (Version 1)
Quarter: 2024Q3

REPORT INFORMATION
  Report Type: Spontaneous
  Country: US (occurrence: US)
  Receive Date: 20240827
  Receipt Date: 20240827
  Transmission Date: 20241016
  Serious: Yes (Death)
  Sender: EISAI
  Company Number: US-Eisai-EC-2024-172736

PATIENT
  Age: 74 Year
  Sex: Male

DRUGS (1)
  1. LEQEMBI [Suspect]
     Active Substance: LECANEMAB-IRMB
     Indication: Dementia Alzheimer^s type
     Dosage: DOSE UNKNOWN
     Route: 042
     Dates: start: 20240322

REACTIONS (3)
  - Diverticulitis [Fatal]
  - Sepsis [Fatal]
  - Aortic aneurysm rupture [Fatal]

NARRATIVE: CASE EVENT DATE: 20240801
